FAERS Safety Report 5509413-8 (Version None)
Quarter: 2007Q4

REPORT INFORMATION
  Report Type: 
  Country: None (occurrence: None)
  Receive Date: 20071106
  Receipt Date: 20071022
  Transmission Date: 20080405
  Serious: Yes (Other)
  Sender: FDA-Public Use
  Company Number: S07-USA-05608-01

PATIENT
  Age: 27 Year
  Sex: Female

DRUGS (4)
  1. LEXAPRO [Suspect]
     Indication: POSTPARTUM DEPRESSION
     Dosage: 10 MG QOD PO
     Route: 048
     Dates: start: 20070928, end: 20071005
  2. LEXAPRO [Suspect]
     Indication: POSTPARTUM DEPRESSION
     Dosage: 10 MG QD PO
     Route: 048
     Dates: start: 20071006, end: 20071018
  3. LEXAPRO [Suspect]
     Indication: POSTPARTUM DEPRESSION
     Dosage: 7.5 MG QD PO
     Route: 048
     Dates: start: 20071019
  4. LEXAPRO [Suspect]
     Indication: POSTPARTUM DEPRESSION
     Dosage: 10 MG QD PO
     Route: 048
     Dates: start: 20070622, end: 20070927

REACTIONS (3)
  - DYSKINESIA [None]
  - HEADACHE [None]
  - MUSCLE SPASMS [None]
